FAERS Safety Report 20026712 (Version 2)
Quarter: 2021Q4

REPORT INFORMATION
  Report Type: Report from Study
  Country: TW (occurrence: TW)
  Receive Date: 20211102
  Receipt Date: 20211201
  Transmission Date: 20220304
  Serious: Yes (Hospitalization, Other)
  Sender: FDA-Public Use
  Company Number: TW-JNJFOC-20210847068

PATIENT
  Age: 68 Year
  Sex: Female
  Weight: 48 kg

DRUGS (18)
  1. SIMPONI [Suspect]
     Active Substance: GOLIMUMAB
     Indication: Colitis ulcerative
     Route: 058
     Dates: start: 20210423, end: 20210617
  2. URSODIOL [Concomitant]
     Active Substance: URSODIOL
     Indication: Chronic hepatitis
     Route: 065
     Dates: start: 20210626
  3. CYPROHEPTADINE [Concomitant]
     Active Substance: CYPROHEPTADINE
     Indication: Nasal congestion
     Route: 065
     Dates: start: 20210724
  4. CYPROHEPTADINE [Concomitant]
     Active Substance: CYPROHEPTADINE
     Indication: Hypersensitivity
  5. LORAZEPAM [Concomitant]
     Active Substance: LORAZEPAM
     Indication: Hypersomnia
     Route: 065
     Dates: start: 20210724
  6. PANTOPRAZOLE [Concomitant]
     Active Substance: PANTOPRAZOLE
     Indication: Gastrooesophageal reflux disease
     Route: 065
     Dates: start: 20210730
  7. PANTOPRAZOLE [Concomitant]
     Active Substance: PANTOPRAZOLE
     Indication: Peptic ulcer
  8. VALGANCICLOVIR [Concomitant]
     Active Substance: VALGANCICLOVIR
     Indication: Acquired immunodeficiency syndrome
     Route: 065
     Dates: start: 20210806
  9. VALGANCICLOVIR [Concomitant]
     Active Substance: VALGANCICLOVIR
     Indication: Retinitis
  10. DEXAMETHASONE [Concomitant]
     Active Substance: DEXAMETHASONE
     Indication: Inflammation
     Route: 065
     Dates: start: 20210724
  11. PREDNISOLONE [Concomitant]
     Active Substance: PREDNISOLONE
     Indication: Urticaria chronic
     Route: 065
     Dates: start: 20210626
  12. PREDNISOLONE [Concomitant]
     Active Substance: PREDNISOLONE
     Indication: Rhinitis
  13. FAMOTIDINE [Concomitant]
     Active Substance: FAMOTIDINE
     Indication: Gastric ulcer
     Dates: start: 20210810
  14. FAMOTIDINE [Concomitant]
     Active Substance: FAMOTIDINE
     Indication: Peptic ulcer
  15. ESCITALOPRAM [Concomitant]
     Active Substance: ESCITALOPRAM OXALATE
     Indication: Depression
     Dates: start: 20210810
  16. UTRAPHEN [Concomitant]
     Indication: Pain
     Dates: start: 20210810
  17. CALCITRIOL [Concomitant]
     Active Substance: CALCITRIOL
     Indication: Chondrosis
     Dates: start: 20210810
  18. CALCITRIOL [Concomitant]
     Active Substance: CALCITRIOL
     Indication: Vitamin D deficiency

REACTIONS (2)
  - Hepatic failure [Recovered/Resolved]
  - Sepsis [Recovered/Resolved]

NARRATIVE: CASE EVENT DATE: 20210626
